FAERS Safety Report 4457618-X (Version None)
Quarter: 2004Q3

REPORT INFORMATION
  Report Type: 
  Country: None (occurrence: None)
  Receive Date: 20040923
  Receipt Date: 20040913
  Transmission Date: 20050211
  Serious: Yes (Hospitalization)
  Sender: FDA-Public Use
  Company Number: HQWYE004914SEP04

PATIENT
  Age: 1 Year
  Sex: Male

DRUGS (3)
  1. CHILDREN'S ADVIL [Suspect]
     Indication: PYREXIA
     Dosage: ORAL
     Route: 048
     Dates: start: 20040717, end: 20040717
  2. AMOXICILLIN TRIHYDRATE [Suspect]
     Indication: PHARYNGEAL ERYTHEMA
     Dates: start: 20040716, end: 20040717
  3. DOLIPRANE (PARACETAMOL, ) [Suspect]
     Indication: PYREXIA

REACTIONS (3)
  - PHARYNGEAL ERYTHEMA [None]
  - PNEUMONIA [None]
  - VARICELLA [None]
